FAERS Safety Report 11544522 (Version 1)
Quarter: 2015Q3

REPORT INFORMATION
  Report Type: Spontaneous
  Country: US (occurrence: US)
  Receive Date: 20150924
  Receipt Date: 20150924
  Transmission Date: 20151125
  Serious: Yes (Other)
  Sender: FDA-Public Use
  Company Number: US-SUN PHARMACEUTICAL INDUSTRIES LTD-13SUNGE19P

PATIENT
  Age: 14 Year
  Sex: Female

DRUGS (4)
  1. DOCETAXEL. [Concomitant]
     Active Substance: DOCETAXEL
     Indication: CHEMOTHERAPY
     Dosage: 100MG/M^2 ON DAY 8 FOR 2 CYCLES AT 21 DAYS AND 28 DAYS, 1DOSE/1CYCLIC
     Route: 065
  2. DOCETAXEL. [Concomitant]
     Active Substance: DOCETAXEL
     Dosage: CYCLE 3 WAS DELAYED FOR 3 WEEKS FOLLOWED BY 4TH CYCLE
     Route: 065
  3. GEMCITABINE [Suspect]
     Active Substance: GEMCITABINE\GEMCITABINE HYDROCHLORIDE
     Indication: CHEMOTHERAPY
     Dosage: 900MG/M^2 ON DAYS 1 AND 8 FOR 2 CYCLES AT 21 DAYS AND 28 DAYS, 2DOSE/1CYCLIC
     Route: 065
  4. GEMCITABINE [Suspect]
     Active Substance: GEMCITABINE\GEMCITABINE HYDROCHLORIDE
     Dosage: CYCLE 3 WAS DELAYED FOR 3 WEEKS FOLLOWED BY 4TH CYCLE
     Route: 065

REACTIONS (3)
  - Compartment syndrome [Unknown]
  - Recall phenomenon [Recovering/Resolving]
  - Myositis [Recovering/Resolving]
